FAERS Safety Report 4602415-5 (Version None)
Quarter: 2005Q1

REPORT INFORMATION
  Report Type: 
  Country: None (occurrence: None)
  Receive Date: 20050307
  Receipt Date: 20050105
  Transmission Date: 20050727
  Serious: Yes (Other)
  Sender: FDA-Public Use
  Company Number: 2004241311US

PATIENT
  Age: 42 Year
  Sex: Female
  Weight: 63.9572 kg

DRUGS (3)
  1. BEXTRA [Suspect]
     Indication: RHEUMATOID ARTHRITIS
     Dosage: 20 MG (BID)
     Dates: start: 20041008
  2. PREDNISONE (PREDINISONE) [Concomitant]
  3. METHOTREXATE [Concomitant]

REACTIONS (1)
  - SKIN LESION [None]
